FAERS Safety Report 8550573-2 (Version None)
Quarter: 2012Q3

REPORT INFORMATION
  Report Type: 
  Country: None (occurrence: None)
  Receive Date: 20120730
  Receipt Date: 20110623
  Transmission Date: 20120928
  Serious: No
  Sender: FDA-Public Use
  Company Number: US-ALLERGAN-1108527US

PATIENT
  Age: 64 Year
  Sex: Female

DRUGS (1)
  1. LATISSE [Suspect]
     Indication: GROWTH OF EYELASHES
     Dosage: 1 GTT, QHS
     Route: 061
     Dates: start: 20110620

REACTIONS (6)
  - MUSCLE TIGHTNESS [None]
  - OCULAR HYPERAEMIA [None]
  - PYREXIA [None]
  - SKIN HYPERPIGMENTATION [None]
  - DRY MOUTH [None]
  - LIP SWELLING [None]
